FAERS Safety Report 14173555 (Version 1)
Quarter: 2017Q4

REPORT INFORMATION
  Report Type: Spontaneous
  Country: US (occurrence: US)
  Receive Date: 20171109
  Receipt Date: 20171109
  Transmission Date: 20180321
  Serious: Yes (Other)
  Sender: FDA-Public Use
  Company Number: US-LUPIN PHARMACEUTICALS INC.-2017-06400

PATIENT
  Age: 63 Year
  Sex: Male

DRUGS (2)
  1. AMPHOTERICIN [Concomitant]
     Active Substance: AMPHOTERICIN B
     Indication: ANTIFUNGAL TREATMENT
     Dosage: 200 MG, QD
     Route: 042
  2. FLUCYTOSINE. [Suspect]
     Active Substance: FLUCYTOSINE
     Indication: ANTIFUNGAL TREATMENT
     Dosage: 2000 MG, QID (EVERY 6 HOURS)
     Route: 042

REACTIONS (2)
  - Electrolyte imbalance [Unknown]
  - Neutropenia [Unknown]
